FAERS Safety Report 6861984-5 (Version None)
Quarter: 2010Q3

REPORT INFORMATION
  Report Type: 
  Country: None (occurrence: None)
  Receive Date: 20100720
  Receipt Date: 20100720
  Transmission Date: 20110219
  Serious: No
  Sender: FDA-Public Use
  Company Number: None

PATIENT
  Sex: Female

DRUGS (3)
  1. TOPAMAX [Suspect]
     Indication: EPILEPSY
     Dosage: PRIOR TO SEEING US AS A NEW PT 1/14/10
  2. ZONISAMIDE [Suspect]
     Indication: EPILEPSY
  3. LAMICTAL [Concomitant]

REACTIONS (2)
  - ADVERSE DRUG REACTION [None]
  - DRUG INEFFECTIVE [None]
